FAERS Safety Report 15101446 (Version 4)
Quarter: 2018Q4

REPORT INFORMATION
  Report Type: Spontaneous
  Country: US (occurrence: US)
  Receive Date: 20180703
  Receipt Date: 20181009
  Transmission Date: 20190204
  Serious: Yes (Other)
  Sender: FDA-Public Use
  Company Number: US-GLAXOSMITHKLINE-US2018GSK112817

PATIENT
  Sex: Male
  Weight: 63.49 kg

DRUGS (4)
  1. DOXYCLINE [Suspect]
     Active Substance: DOXYCYCLINE
     Indication: PRODUCT USED FOR UNKNOWN INDICATION
     Dosage: UNK
     Route: 065
     Dates: start: 200807, end: 20170815
  2. COREG [Suspect]
     Active Substance: CARVEDILOL
     Indication: CARDIAC FAILURE
     Dosage: UNK
     Route: 048
     Dates: start: 201608, end: 201704
  3. FLAGYL [Concomitant]
     Active Substance: METRONIDAZOLE\METRONIDAZOLE HYDROCHLORIDE
  4. METOPROLOL. [Concomitant]
     Active Substance: METOPROLOL

REACTIONS (6)
  - Type III immune complex mediated reaction [Unknown]
  - Drug hypersensitivity [Unknown]
  - Cough [Unknown]
  - Rash generalised [Unknown]
  - Rash pruritic [Unknown]
  - Medication error [Unknown]
